FAERS Safety Report 7492073-7 (Version None)
Quarter: 2011Q2

REPORT INFORMATION
  Report Type: 
  Country: None (occurrence: None)
  Receive Date: 20110519
  Receipt Date: 20110509
  Transmission Date: 20111010
  Serious: Yes (Hospitalization)
  Sender: FDA-Public Use
  Company Number: CA-UCBSA-028593

PATIENT
  Sex: Female
  Weight: 48 kg

DRUGS (8)
  1. VITAMIN D [Concomitant]
  2. CIMZIA [Suspect]
     Indication: CROHN'S DISEASE
     Route: 058
     Dates: start: 20100531, end: 20100628
  3. CIMZIA [Suspect]
     Route: 058
     Dates: start: 20100726
  4. FERROUS SULFATE TAB [Concomitant]
     Route: 048
     Dates: start: 20110426
  5. PREDNISONE [Concomitant]
     Indication: CROHN'S DISEASE
     Dates: start: 20100602
  6. CALCIUM CARBONATE [Concomitant]
  7. PREDNISONE [Concomitant]
     Route: 048
     Dates: start: 20110426
  8. FERROUS SULFATE TAB [Concomitant]
     Indication: ANAEMIA

REACTIONS (7)
  - PYREXIA [None]
  - ARTHRALGIA [None]
  - WEIGHT DECREASED [None]
  - JOINT SWELLING [None]
  - DIARRHOEA [None]
  - SYNOVIAL CYST [None]
  - ASTHENIA [None]
